FAERS Safety Report 12616144 (Version 1)
Quarter: 2016Q3

REPORT INFORMATION
  Report Type: Spontaneous
  Country: US (occurrence: US)
  Receive Date: 20160802
  Receipt Date: 20160802
  Transmission Date: 20161109
  Serious: No
  Sender: FDA-Public Use
  Company Number: US-009507513-1607USA012174

PATIENT
  Age: 15 Year
  Sex: Female
  Weight: 57.6 kg

DRUGS (1)
  1. NEXPLANON [Suspect]
     Active Substance: ETONOGESTREL
     Indication: CONTRACEPTION
     Dosage: 3 YEAR IMPLANT

REACTIONS (3)
  - Implant site pain [Unknown]
  - Implant site pruritus [Unknown]
  - Mass [Unknown]

NARRATIVE: CASE EVENT DATE: 20160727
